FAERS Safety Report 5821166-2 (Version None)
Quarter: 2008Q3

REPORT INFORMATION
  Report Type: 
  Country: None (occurrence: None)
  Receive Date: 20080721
  Receipt Date: 20080715
  Transmission Date: 20090109
  Serious: Yes (Death, Hospitalization)
  Sender: FDA-Public Use
  Company Number: CLOF-1000212

PATIENT
  Age: 31 Year
  Sex: Female
  Weight: 90 kg

DRUGS (8)
  1. CLOLAR [Suspect]
     Indication: ACUTE LYMPHOCYTIC LEUKAEMIA
     Dosage: 40 MG/M2, QDX5, INTRAVENOUS
     Route: 042
     Dates: start: 20080612, end: 20080616
  2. CYTARABINE [Suspect]
     Indication: ACUTE LYMPHOCYTIC LEUKAEMIA
     Dosage: 1000 MG/M2, QDX5, INTRAVENOUS
     Route: 042
     Dates: start: 20080612, end: 20080616
  3. COREG [Concomitant]
  4. SPIRONOLACTONE [Concomitant]
  5. OXYCODONE HCL [Concomitant]
  6. OXYCONTIN [Concomitant]
  7. AMBIEN [Concomitant]
  8. COLACE (DOCUSATE SODIUM) [Concomitant]

REACTIONS (28)
  - ABDOMINAL PAIN [None]
  - ACIDOSIS [None]
  - ANAEMIA [None]
  - BLOOD CULTURE POSITIVE [None]
  - CATHETER SITE HAEMORRHAGE [None]
  - CHILLS [None]
  - CLOSTRIDIAL INFECTION [None]
  - CLOSTRIDIUM DIFFICILE TOXIN TEST POSITIVE [None]
  - DISSEMINATED INTRAVASCULAR COAGULATION [None]
  - DYSPNOEA [None]
  - ENTEROCOCCAL INFECTION [None]
  - FLUID OVERLOAD [None]
  - HAEMODIALYSIS [None]
  - HEPATOTOXICITY [None]
  - HYPERCAPNIA [None]
  - HYPOTENSION [None]
  - METABOLIC ACIDOSIS [None]
  - MULTI-ORGAN FAILURE [None]
  - OLIGURIA [None]
  - PALMAR-PLANTAR ERYTHRODYSAESTHESIA SYNDROME [None]
  - PYREXIA [None]
  - RENAL TUBULAR NECROSIS [None]
  - SEPSIS [None]
  - SKIN DISCOLOURATION [None]
  - SUBARACHNOID HAEMORRHAGE [None]
  - TACHYCARDIA [None]
  - THROMBOCYTOPENIA [None]
  - TRANSAMINASES INCREASED [None]
